FAERS Safety Report 4341142-9 (Version None)
Quarter: 2004Q2

REPORT INFORMATION
  Report Type: 
  Country: None (occurrence: None)
  Receive Date: 20040419
  Receipt Date: 20040414
  Transmission Date: 20050107
  Serious: Yes (Other)
  Sender: FDA-Public Use
  Company Number: US-GLAXOSMITHKLINE-A0507197A

PATIENT
  Age: 49 Year
  Sex: Male

DRUGS (1)
  1. PAXIL CR [Suspect]
     Dosage: 25MG TWICE PER DAY
     Route: 048
     Dates: start: 20030101

REACTIONS (2)
  - GASTROINTESTINAL HAEMORRHAGE [None]
  - PETIT MAL EPILEPSY [None]
